FAERS Safety Report 17036388 (Version 2)
Quarter: 2019Q4

REPORT INFORMATION
  Report Type: Spontaneous
  Country: US (occurrence: US)
  Receive Date: 20191115
  Receipt Date: 20191219
  Transmission Date: 20200122
  Serious: No
  Sender: FDA-Public Use
  Company Number: US-GLAXOSMITHKLINE-US2019205487

PATIENT
  Age: 35 Year
  Sex: Female

DRUGS (3)
  1. CODEINE [Suspect]
     Active Substance: CODEINE
     Indication: PRODUCT USED FOR UNKNOWN INDICATION
     Dosage: UNK
     Route: 065
  2. ABREVA [Suspect]
     Active Substance: DOCOSANOL
     Indication: ORAL HERPES
     Dosage: UNK, PRN
     Dates: start: 20191111, end: 20191111
  3. ABREVA [Suspect]
     Active Substance: DOCOSANOL
     Dosage: APPLIED TO LIPS ONCE, PRN
     Dates: start: 20191110, end: 20191110

REACTIONS (9)
  - Mouth swelling [Not Recovered/Not Resolved]
  - Drug hypersensitivity [Unknown]
  - Eye swelling [Unknown]
  - Blister [Unknown]
  - Inappropriate schedule of product administration [Unknown]
  - Nasal oedema [Not Recovered/Not Resolved]
  - Lip swelling [Unknown]
  - Swelling face [Not Recovered/Not Resolved]
  - Urticaria [Unknown]

NARRATIVE: CASE EVENT DATE: 20191111
